FAERS Safety Report 4363727-6 (Version None)
Quarter: 2004Q2

REPORT INFORMATION
  Report Type: 
  Country: None (occurrence: None)
  Receive Date: 20040521
  Receipt Date: 20040521
  Transmission Date: 20050107
  Serious: Yes (Hospitalization)
  Sender: FDA-Public Use
  Company Number: None

PATIENT
  Sex: Female

DRUGS (10)
  1. DIGOXIN [Suspect]
     Indication: ATRIAL FIBRILLATION
     Dosage: 125 MCG ONCE DAILY ORAL
     Route: 048
     Dates: start: 20040101, end: 20040512
  2. DIGOXIN [Concomitant]
  3. DILTIAZEM CD [Concomitant]
  4. ASPIRIN [Concomitant]
  5. COLACE [Concomitant]
  6. FUROSEMIDE [Concomitant]
  7. BUMETANIDE [Concomitant]
  8. POTASSIUM CHLORIDE [Concomitant]
  9. ENALAPRIL [Concomitant]
  10. SLOW FE [Concomitant]

REACTIONS (8)
  - ASTHENIA [None]
  - ATRIAL FIBRILLATION [None]
  - BRADYCARDIA [None]
  - DRUG LEVEL INCREASED [None]
  - IRON DEFICIENCY ANAEMIA [None]
  - NAUSEA [None]
  - POLLAKIURIA [None]
  - VENTRICULAR EXTRASYSTOLES [None]
